FAERS Safety Report 18542235 (Version 1)
Quarter: 2020Q4

REPORT INFORMATION
  Report Type: Spontaneous
  Country: US (occurrence: US)
  Receive Date: 20201125
  Receipt Date: 20201125
  Transmission Date: 20210114
  Serious: No
  Sender: FDA-Public Use
  Company Number: US-SUN PHARMACEUTICAL INDUSTRIES LTD-2020R1-264320

PATIENT
  Sex: Female

DRUGS (1)
  1. ABSORICA LD [Suspect]
     Active Substance: ISOTRETINOIN
     Indication: PRODUCT USED FOR UNKNOWN INDICATION
     Dosage: UNK
     Route: 065
     Dates: start: 20200925

REACTIONS (1)
  - Product prescribing error [Unknown]

NARRATIVE: CASE EVENT DATE: 2020
